FAERS Safety Report 8444039-8 (Version None)
Quarter: 2012Q2

REPORT INFORMATION
  Report Type: 
  Country: None (occurrence: None)
  Receive Date: 20120618
  Receipt Date: 20120613
  Transmission Date: 20120825
  Serious: Yes (Other)
  Sender: FDA-Public Use
  Company Number: PHEH2012US011842

PATIENT
  Sex: Male

DRUGS (3)
  1. CRESTOR [Concomitant]
     Dosage: 5 MG, UNK
  2. CREMFIBROZIL [Concomitant]
     Dosage: 600 MG, UNK
  3. DIOVAN HCT [Suspect]
     Indication: HYPERTENSION
     Dosage: (80/12.5 MG), ONCE DAILY

REACTIONS (1)
  - GASTROINTESTINAL DISORDER [None]
